FAERS Safety Report 4275685-3 (Version None)
Quarter: 2004Q1

REPORT INFORMATION
  Report Type: 
  Country: None (occurrence: None)
  Receive Date: 20040121
  Receipt Date: 20040121
  Transmission Date: 20041129
  Serious: No
  Sender: FDA-Public Use
  Company Number: None

PATIENT
  Age: 6 Week

DRUGS (2)
  1. PRILOSEC [Suspect]
     Dosage: 3MG/ML SUSPENSION
  2. PREVACID [Suspect]
     Dosage: 3MG/ML SUSPENSION

REACTIONS (1)
  - MEDICATION ERROR [None]
